FAERS Safety Report 12877772 (Version 8)
Quarter: 2017Q2

REPORT INFORMATION
  Report Type: Spontaneous
  Country: PR (occurrence: PR)
  Receive Date: 20161024
  Receipt Date: 20170530
  Transmission Date: 20170830
  Serious: Yes (Other)
  Sender: FDA-Public Use
  Company Number: PR-PFIZER INC-2016490565

PATIENT
  Age: 73 Year
  Sex: Female
  Weight: 77 kg

DRUGS (7)
  1. IBRANCE [Suspect]
     Active Substance: PALBOCICLIB
     Dosage: 125 MG, DAILY
     Route: 048
     Dates: start: 20161004
  2. IBRANCE [Suspect]
     Active Substance: PALBOCICLIB
     Dosage: 100 MG, DAILY
     Route: 048
     Dates: start: 20161004
  3. IBRANCE [Suspect]
     Active Substance: PALBOCICLIB
     Dosage: 100 MG, DAILY
     Route: 048
     Dates: start: 20161004
  4. IBRANCE [Suspect]
     Active Substance: PALBOCICLIB
     Dosage: 100 MG, DAILY
     Route: 048
     Dates: start: 20161004
  5. IBRANCE [Suspect]
     Active Substance: PALBOCICLIB
     Indication: BREAST CANCER FEMALE
     Dosage: 125 MG (1 CAPSULE), DAILY
     Route: 048
     Dates: start: 20161004
  6. IBRANCE [Suspect]
     Active Substance: PALBOCICLIB
     Dosage: 125 MG (1 CAPSULE), DAILY
     Route: 048
     Dates: start: 20161004
  7. IBRANCE [Suspect]
     Active Substance: PALBOCICLIB
     Dosage: 125 MG (1 CAPSULE), DAILY
     Route: 048
     Dates: start: 20161004

REACTIONS (10)
  - Influenza [Unknown]
  - Diarrhoea [Unknown]
  - Hypoaesthesia [Unknown]
  - White blood cell count decreased [Unknown]
  - Rash macular [Unknown]
  - Immune system disorder [Unknown]
  - Haemoglobin decreased [Unknown]
  - Peripheral swelling [Unknown]
  - Pain in extremity [Unknown]
  - Haemorrhage [Unknown]

NARRATIVE: CASE EVENT DATE: 20161018
